FAERS Safety Report 20883339 (Version 1)
Quarter: 2022Q2

REPORT INFORMATION
  Report Type: Spontaneous
  Country: US (occurrence: US)
  Receive Date: 20220527
  Receipt Date: 20220527
  Transmission Date: 20220721
  Serious: No
  Sender: FDA-Public Use
  Company Number: US-PFIZER INC-202200743593

PATIENT
  Age: 65 Year
  Sex: Male

DRUGS (1)
  1. PAXLOVID [Suspect]
     Active Substance: NIRMATRELVIR\RITONAVIR
     Indication: COVID-19 treatment
     Dosage: UNK
     Dates: end: 20220517

REACTIONS (7)
  - Fatigue [Unknown]
  - Pain [Unknown]
  - Chills [Unknown]
  - Headache [Unknown]
  - Oropharyngeal pain [Unknown]
  - Eye pain [Unknown]
  - Insomnia [Unknown]

NARRATIVE: CASE EVENT DATE: 20220518
